APPROVED DRUG PRODUCT: NITROFURANTOIN
Active Ingredient: NITROFURANTOIN, MACROCRYSTALLINE
Strength: 100MG
Dosage Form/Route: CAPSULE;ORAL
Application: A203233 | Product #002 | TE Code: AB
Applicant: NOVEL LABORATORIES INC
Approved: Jul 9, 2018 | RLD: No | RS: No | Type: RX